FAERS Safety Report 7788591-4 (Version None)
Quarter: 2011Q3

REPORT INFORMATION
  Report Type: 
  Country: None (occurrence: None)
  Receive Date: 20110930
  Receipt Date: 20110919
  Transmission Date: 20111222
  Serious: Yes (Other)
  Sender: FDA-Public Use
  Company Number: NZ-SANOFI-AVENTIS-2011SA053530

PATIENT
  Age: 57 Year
  Sex: Female

DRUGS (6)
  1. ACETAMINOPHEN [Concomitant]
  2. ARAVA [Suspect]
     Route: 048
     Dates: start: 20110302
  3. SULFASALAZINE [Concomitant]
  4. PREDNISONE [Concomitant]
  5. CODEINE SULFATE [Concomitant]
  6. ENALAPRIL MALEATE [Concomitant]

REACTIONS (3)
  - WHITE BLOOD CELL COUNT INCREASED [None]
  - RASH [None]
  - C-REACTIVE PROTEIN INCREASED [None]
